FAERS Safety Report 5171602-2 (Version None)
Quarter: 2006Q4

REPORT INFORMATION
  Report Type: 
  Country: None (occurrence: None)
  Receive Date: 20061205
  Receipt Date: 20061120
  Transmission Date: 20070319
  Serious: Yes (Hospitalization)
  Sender: FDA-Public Use
  Company Number: 2006067190

PATIENT
  Age: 77 Year
  Sex: Female
  Weight: 98.8842 kg

DRUGS (14)
  1. SUTENT [Suspect]
     Indication: METASTATIC MALIGNANT MELANOMA
     Dosage: 25 MG (25 MG, D-8-28, Q28D), ORAL
     Route: 048
     Dates: start: 20060503, end: 20060521
  2. TEMOZOLOMIDE [Suspect]
     Indication: METASTATIC MALIGNANT MELANOMA
     Dosage: SEE IMAGE
     Route: 048
     Dates: start: 20060426, end: 20060502
  3. TEMOZOLOMIDE [Suspect]
     Indication: METASTATIC MALIGNANT MELANOMA
     Dosage: SEE IMAGE
     Route: 048
     Dates: start: 20060510, end: 20060515
  4. TEMOZOLOMIDE [Suspect]
  5. TEMOZOLOMIDE [Suspect]
  6. SKELAXIN [Concomitant]
  7. VALSARTAN [Concomitant]
  8. INDAPAMIDE [Concomitant]
  9. CLARINEX [Concomitant]
  10. MOBIC [Concomitant]
  11. NEXIUM [Concomitant]
  12. PEPCID [Concomitant]
  13. QUININE SULFATE [Concomitant]
  14. SEREVENT [Concomitant]

REACTIONS (23)
  - ANOREXIA [None]
  - ASTHENIA [None]
  - COLITIS [None]
  - COUGH [None]
  - DEHYDRATION [None]
  - DIVERTICULUM INTESTINAL [None]
  - DRY MOUTH [None]
  - FEBRILE NEUTROPENIA [None]
  - INFECTION [None]
  - METASTASES TO KIDNEY [None]
  - METASTASES TO LIVER [None]
  - METASTASES TO LYMPH NODES [None]
  - METASTASES TO SPLEEN [None]
  - MUCOSAL INFLAMMATION [None]
  - NAUSEA [None]
  - ORAL PAIN [None]
  - PANCYTOPENIA [None]
  - RENAL FAILURE ACUTE [None]
  - SPUTUM DISCOLOURED [None]
  - STOMATITIS [None]
  - URINARY TRACT INFECTION [None]
  - VOMITING [None]
  - WEIGHT DECREASED [None]
